FAERS Safety Report 8062448-6 (Version None)
Quarter: 2012Q1

REPORT INFORMATION
  Report Type: 
  Country: None (occurrence: None)
  Receive Date: 20120123
  Receipt Date: 20120112
  Transmission Date: 20120608
  Serious: Yes (Other)
  Sender: FDA-Public Use
  Company Number: US-SANOFI-AVENTIS-2012SA002550

PATIENT
  Sex: Female

DRUGS (2)
  1. LANTUS [Suspect]
     Dosage: DOSE:21 UNIT(S)
     Route: 058
  2. SOLOSTAR [Suspect]

REACTIONS (3)
  - LUNG INFECTION [None]
  - SINUS DISORDER [None]
  - ARTHRITIS [None]
